FAERS Safety Report 9836453 (Version 13)
Quarter: 2015Q3

REPORT INFORMATION
  Report Type: Report from Study
  Country: CN (occurrence: CN)
  Receive Date: 20140123
  Receipt Date: 20150804
  Transmission Date: 20151125
  Serious: Yes (Hospitalization)
  Sender: FDA-Public Use
  Company Number: CN-ROCHE-1334068

PATIENT
  Age: 64 Year
  Sex: Female
  Weight: 49 kg

DRUGS (91)
  1. DEXAMETHASONE SODIUM PHOSPHATE. [Concomitant]
     Active Substance: DEXAMETHASONE SODIUM PHOSPHATE
     Indication: PREMEDICATION
     Route: 065
     Dates: start: 20131209
  2. DEXAMETHASONE SODIUM PHOSPHATE. [Concomitant]
     Active Substance: DEXAMETHASONE SODIUM PHOSPHATE
     Route: 065
     Dates: start: 20140208, end: 20140208
  3. IRON SUCROSE [Concomitant]
     Active Substance: IRON SUCROSE
     Route: 065
     Dates: start: 20140319, end: 20140319
  4. IRON SUCROSE [Concomitant]
     Active Substance: IRON SUCROSE
     Route: 065
     Dates: start: 20140414, end: 20140414
  5. IRON SUCROSE [Concomitant]
     Active Substance: IRON SUCROSE
     Route: 065
     Dates: start: 20150228, end: 20150228
  6. LIDOCAINE HYDROCHLORIDE. [Concomitant]
     Active Substance: LIDOCAINE HYDROCHLORIDE
     Dosage: MUCILAGE
     Route: 065
     Dates: start: 20150228, end: 20150228
  7. CALCIUM GLUCONATE. [Concomitant]
     Active Substance: CALCIUM GLUCONATE
     Indication: PREMEDICATION
     Route: 065
     Dates: start: 20140116, end: 20140116
  8. BERBAMINE HYDROCHLORIDE [Concomitant]
     Route: 065
     Dates: start: 20140430, end: 20140505
  9. ESOMEPRAZOLE SODIUM. [Concomitant]
     Active Substance: ESOMEPRAZOLE SODIUM
     Indication: NAUSEA
     Route: 065
     Dates: start: 20140526, end: 20140526
  10. MEDIUM CHAIN TRIGLYCERIDES [Concomitant]
     Route: 065
     Dates: start: 20150312, end: 20150313
  11. ERYTHROMYCIN OINTMENT [Concomitant]
     Active Substance: ERYTHROMYCIN
     Route: 065
     Dates: start: 20150310, end: 20150310
  12. VALSARTAN. [Concomitant]
     Active Substance: VALSARTAN
     Indication: HYPERTENSION
     Route: 065
     Dates: start: 20131015, end: 20150306
  13. FUROSEMIDE. [Concomitant]
     Active Substance: FUROSEMIDE
     Indication: POLYURIA
     Route: 065
     Dates: start: 20131208
  14. DEXAMETHASONE SODIUM PHOSPHATE. [Concomitant]
     Active Substance: DEXAMETHASONE SODIUM PHOSPHATE
     Route: 065
     Dates: start: 20140116, end: 20140116
  15. IRON SUCROSE [Concomitant]
     Active Substance: IRON SUCROSE
     Indication: ANAEMIA
     Route: 065
     Dates: start: 20140114, end: 20140114
  16. IRON SUCROSE [Concomitant]
     Active Substance: IRON SUCROSE
     Route: 065
     Dates: start: 20140505, end: 20140505
  17. IRON SUCROSE [Concomitant]
     Active Substance: IRON SUCROSE
     Route: 065
     Dates: start: 20150313, end: 20150314
  18. BERBAMINE HYDROCHLORIDE [Concomitant]
     Indication: NEUTROPENIA
     Route: 065
     Dates: start: 20140127, end: 20140207
  19. ESTAZOLAM. [Concomitant]
     Active Substance: ESTAZOLAM
     Indication: INSOMNIA
     Route: 065
     Dates: start: 20140202
  20. ALANYL-GLUTAMINE [Concomitant]
     Route: 065
     Dates: start: 20150304, end: 20150310
  21. DIPHENHYDRAMINE HYDROCHLORIDE. [Concomitant]
     Active Substance: DIPHENHYDRAMINE HYDROCHLORIDE
     Route: 065
     Dates: start: 20150227, end: 20150227
  22. CARBAZOCHROME SODIUM SULFONATE [Concomitant]
     Active Substance: CARBAZOCHROME SODIUM SULFONATE
     Indication: HAEMOSTASIS
     Route: 065
     Dates: start: 20150310, end: 20150310
  23. CISPLATIN. [Suspect]
     Active Substance: CISPLATIN
     Indication: METASTATIC GASTRIC CANCER
     Dosage: DOSAGE ON DAY 1, LAST DOSE PRIOR TO EVENT:02/JAN/2014 (92.4MG)
     Route: 042
     Dates: start: 20131022
  24. OMEPRAZOLE SODIUM [Concomitant]
     Active Substance: OMEPRAZOLE SODIUM
     Route: 065
     Dates: start: 20131209
  25. LACTULOSE. [Concomitant]
     Active Substance: LACTULOSE
     Indication: CONSTIPATION
     Route: 065
     Dates: start: 20140210, end: 20140215
  26. DIPHENHYDRAMINE HYDROCHLORIDE. [Concomitant]
     Active Substance: DIPHENHYDRAMINE HYDROCHLORIDE
     Route: 065
     Dates: start: 20150310, end: 20150310
  27. HUMAN ALBUMIN [Concomitant]
     Active Substance: ALBUMIN (HUMAN)
     Route: 065
     Dates: start: 20150228, end: 20150228
  28. TIOPRONIN [Concomitant]
     Active Substance: TIOPRONIN
     Route: 065
     Dates: start: 20150311, end: 20150313
  29. AMBROXOL HYDROCHLORIDE [Concomitant]
     Active Substance: AMBROXOL HYDROCHLORIDE
     Route: 065
     Dates: start: 20150310, end: 20150313
  30. IOHEXOL [Concomitant]
     Active Substance: IOHEXOL
     Route: 065
     Dates: start: 20150317, end: 20150317
  31. TRASTUZUMAB [Suspect]
     Active Substance: TRASTUZUMAB
     Dosage: MAINTAINENCE DOSE (10 MG/KG), LAST DOSE PRIOR TO EVENT: 02/JAN/2014
     Route: 042
     Dates: start: 20131112
  32. ENTERAL NUTRITION [Concomitant]
     Active Substance: DIETARY SUPPLEMENT
     Route: 065
     Dates: start: 20150305, end: 20150305
  33. MANNITOL 20% [Concomitant]
     Indication: POLYURIA
     Route: 065
     Dates: start: 20131209
  34. IRON SUCROSE [Concomitant]
     Active Substance: IRON SUCROSE
     Route: 065
     Dates: start: 20150303, end: 20150310
  35. IRON SUCROSE [Concomitant]
     Active Substance: IRON SUCROSE
     Route: 065
     Dates: start: 20150314, end: 20150314
  36. COBAMAMIDE [Concomitant]
     Active Substance: COBAMAMIDE
     Indication: NEUROTOXICITY
     Route: 065
     Dates: start: 20140414
  37. ESOMEPRAZOLE SODIUM. [Concomitant]
     Active Substance: ESOMEPRAZOLE SODIUM
     Route: 065
     Dates: start: 20150227, end: 20150308
  38. INSULIN [Concomitant]
     Active Substance: INSULIN NOS
     Route: 065
     Dates: start: 20150227, end: 20150227
  39. ALANYL-GLUTAMINE [Concomitant]
     Route: 065
     Dates: start: 20150227, end: 20150228
  40. NOREPINEPHRINE [Concomitant]
     Active Substance: NOREPINEPHRINE\NOREPINEPHRINE BITARTRATE
     Route: 065
     Dates: start: 20150318, end: 20150319
  41. ALUMINIUM PHOSPHATE [Concomitant]
     Active Substance: ALUMINUM PHOSPHATE
     Route: 065
     Dates: start: 20150309, end: 20150309
  42. LONG CHAIN FAT EMULSION INJECTION [Concomitant]
     Route: 065
     Dates: start: 20150307, end: 20150307
  43. THYMOPENTIN [Concomitant]
     Active Substance: THYMOPENTIN
     Route: 065
     Dates: start: 20150310, end: 20150313
  44. CAPECITABINE. [Suspect]
     Active Substance: CAPECITABINE
     Indication: METASTATIC GASTRIC CANCER
     Dosage: ON DAYS1-14, LAST DOSE PRIOR TO EVENT:02/JAN/2014, DOSE: 2000 MG
     Route: 048
     Dates: start: 20131022
  45. GLUTATHIONE [Concomitant]
     Active Substance: GLUTATHIONE
     Indication: LIVER DISORDER
     Dosage: REDUCED DOSE
     Route: 065
     Dates: start: 20140118, end: 20140119
  46. POTASSIUM CHLORIDE. [Concomitant]
     Active Substance: POTASSIUM CHLORIDE
     Route: 065
     Dates: start: 20150227, end: 20150314
  47. ALANYL-GLUTAMINE [Concomitant]
     Route: 065
     Dates: start: 20150312, end: 20150314
  48. TARTARIC ACID [Concomitant]
     Active Substance: TARTARIC ACID
     Route: 065
     Dates: start: 20150318, end: 20150319
  49. MAGNESIUM SULPHATE [Concomitant]
     Active Substance: MAGNESIUM SULFATE
     Route: 065
     Dates: start: 20150312, end: 20150313
  50. ENTERAL NUTRITION [Concomitant]
     Active Substance: DIETARY SUPPLEMENT
     Route: 065
     Dates: start: 20150302, end: 20150302
  51. POTASSIUM CHLORIDE. [Concomitant]
     Active Substance: POTASSIUM CHLORIDE
     Route: 065
     Dates: start: 20150316
  52. PALONOSETRON HYDROCHLORIDE [Concomitant]
     Active Substance: PALONOSETRON HYDROCHLORIDE
     Route: 065
     Dates: start: 20131209
  53. DEXAMETHASONE SODIUM PHOSPHATE. [Concomitant]
     Active Substance: DEXAMETHASONE SODIUM PHOSPHATE
     Route: 065
     Dates: start: 20140102, end: 20140102
  54. DEXAMETHASONE SODIUM PHOSPHATE. [Concomitant]
     Active Substance: DEXAMETHASONE SODIUM PHOSPHATE
     Route: 065
     Dates: start: 20140319, end: 20140319
  55. IRON SUCROSE [Concomitant]
     Active Substance: IRON SUCROSE
     Route: 065
     Dates: start: 20140115, end: 20140115
  56. IRON SUCROSE [Concomitant]
     Active Substance: IRON SUCROSE
     Route: 065
     Dates: start: 20140304, end: 20140304
  57. LIDOCAINE HYDROCHLORIDE. [Concomitant]
     Active Substance: LIDOCAINE HYDROCHLORIDE
     Indication: ENDOSCOPY UPPER GASTROINTESTINAL TRACT
     Route: 065
     Dates: start: 20140114, end: 20140114
  58. LIDOCAINE HYDROCHLORIDE. [Concomitant]
     Active Substance: LIDOCAINE HYDROCHLORIDE
     Route: 065
     Dates: start: 20150306, end: 20150306
  59. ATROX (ATORVASTATIN CALCIUM) [Concomitant]
     Route: 065
     Dates: start: 20150314, end: 20150314
  60. OCTREOTIDE ACETATE. [Concomitant]
     Active Substance: OCTREOTIDE ACETATE
     Route: 065
     Dates: start: 20150302, end: 20150313
  61. LONG CHAIN FAT EMULSION INJECTION [Concomitant]
     Route: 065
     Dates: start: 20150312, end: 20150313
  62. LACTATED RINGERS [Concomitant]
     Active Substance: CALCIUM CHLORIDE\POTASSIUM CHLORIDE\SODIUM CHLORIDE\SODIUM LACTATE
     Route: 065
     Dates: start: 20150310, end: 20150311
  63. VITAMIN C [Concomitant]
     Active Substance: ASCORBIC ACID
     Route: 065
     Dates: start: 20150310, end: 20150313
  64. INVERT SUGAR [Concomitant]
     Active Substance: INVERT SUGAR
     Route: 065
     Dates: start: 20150311, end: 20150312
  65. TRASTUZUMAB [Suspect]
     Active Substance: TRASTUZUMAB
     Indication: METASTATIC GASTRIC CANCER
     Dosage: LOADING DOSE, ON DAY 1 OF CYCLE 1
     Route: 042
     Dates: start: 20131022
  66. GLUTATHIONE [Concomitant]
     Active Substance: GLUTATHIONE
     Route: 065
     Dates: start: 20150311, end: 20150313
  67. ENTERAL NUTRITION [Concomitant]
     Active Substance: DIETARY SUPPLEMENT
     Indication: NUTRITIONAL SUPPLEMENTATION
     Route: 065
     Dates: start: 20140120
  68. LIDOCAINE HYDROCHLORIDE. [Concomitant]
     Active Substance: LIDOCAINE HYDROCHLORIDE
     Route: 065
     Dates: start: 20140117, end: 20140117
  69. BERBAMINE HYDROCHLORIDE [Concomitant]
     Indication: WHITE BLOOD CELL COUNT DECREASED
     Route: 065
     Dates: start: 20131220, end: 20131227
  70. ESTAZOLAM. [Concomitant]
     Active Substance: ESTAZOLAM
     Route: 065
     Dates: start: 20140209, end: 20140210
  71. ATROX (ATORVASTATIN CALCIUM) [Concomitant]
     Indication: HAEMOSTASIS
     Route: 065
     Dates: start: 20140115, end: 20140115
  72. ATROX (ATORVASTATIN CALCIUM) [Concomitant]
     Route: 065
     Dates: start: 20150227, end: 20150310
  73. ESOMEPRAZOLE SODIUM. [Concomitant]
     Active Substance: ESOMEPRAZOLE SODIUM
     Route: 065
     Dates: start: 20150310, end: 20150315
  74. INSULIN [Concomitant]
     Active Substance: INSULIN NOS
     Route: 065
     Dates: start: 20150310, end: 20150313
  75. ALANYL-GLUTAMINE [Concomitant]
     Route: 065
     Dates: start: 20150302, end: 20150302
  76. TARTARIC ACID [Concomitant]
     Active Substance: TARTARIC ACID
     Indication: BLOOD PRESSURE MEASUREMENT
     Route: 065
     Dates: start: 20150311, end: 20150311
  77. ALUMINIUM PHOSPHATE [Concomitant]
     Active Substance: ALUMINUM PHOSPHATE
     Route: 065
     Dates: start: 20150306, end: 20150307
  78. CEFUROXIME SODIUM. [Concomitant]
     Active Substance: CEFUROXIME SODIUM
     Indication: INFLAMMATION
     Route: 065
     Dates: start: 20150310, end: 20150310
  79. CEFUROXIME SODIUM. [Concomitant]
     Active Substance: CEFUROXIME SODIUM
     Route: 065
     Dates: start: 20150313, end: 20150314
  80. SODIUM GLYCEROPHOSPHATE [Concomitant]
     Active Substance: SODIUM GLYCEROPHOSPHATE
     Route: 065
     Dates: start: 20150312, end: 20150313
  81. POTASSIUM CHLORIDE. [Concomitant]
     Active Substance: POTASSIUM CHLORIDE
     Indication: PROPHYLAXIS
     Route: 065
     Dates: start: 20131208
  82. FUROSEMIDE. [Concomitant]
     Active Substance: FUROSEMIDE
     Route: 065
     Dates: start: 20150311, end: 20150312
  83. IRON SUCROSE [Concomitant]
     Active Substance: IRON SUCROSE
     Route: 065
     Dates: start: 20140707, end: 20140707
  84. BERBAMINE HYDROCHLORIDE [Concomitant]
     Route: 065
     Dates: start: 20140304, end: 20140319
  85. OCTREOTIDE ACETATE. [Concomitant]
     Active Substance: OCTREOTIDE ACETATE
     Indication: HAEMOSTASIS
     Route: 065
     Dates: start: 20150227, end: 20150228
  86. DIPHENHYDRAMINE HYDROCHLORIDE. [Concomitant]
     Active Substance: DIPHENHYDRAMINE HYDROCHLORIDE
     Route: 065
     Dates: start: 20150306, end: 20150306
  87. HUMAN ALBUMIN [Concomitant]
     Active Substance: ALBUMIN (HUMAN)
     Route: 065
     Dates: start: 20150307, end: 20150308
  88. HUMAN ALBUMIN [Concomitant]
     Active Substance: ALBUMIN (HUMAN)
     Route: 065
     Dates: start: 20150311, end: 20150313
  89. NOREPINEPHRINE [Concomitant]
     Active Substance: NOREPINEPHRINE\NOREPINEPHRINE BITARTRATE
     Indication: BLOOD PRESSURE MEASUREMENT
     Route: 065
     Dates: start: 20150311, end: 20150311
  90. MEDIUM CHAIN TRIGLYCERIDES [Concomitant]
     Route: 065
     Dates: start: 20150307, end: 20150307
  91. ASPIRIN. [Concomitant]
     Active Substance: ASPIRIN
     Dosage: ENTERIC COATED TABLETS
     Route: 065
     Dates: start: 20131015, end: 20140306

REACTIONS (2)
  - Palpitations [Recovered/Resolved]
  - Dizziness [Recovered/Resolved]

NARRATIVE: CASE EVENT DATE: 20140113
